FAERS Safety Report 4320855-9 (Version None)
Quarter: 2004Q1

REPORT INFORMATION
  Report Type: 
  Country: None (occurrence: None)
  Receive Date: 20040318
  Receipt Date: 20040310
  Transmission Date: 20041129
  Serious: Yes (Death, Other)
  Sender: FDA-Public Use
  Company Number: HQWYE744411MAR04

PATIENT
  Age: 57 Year
  Sex: Male

DRUGS (1)
  1. RAPAMUNE [Suspect]
     Indication: PROPHYLAXIS AGAINST TRANSPLANT REJECTION
     Dosage: 2 MG 2X PER 1 DAY, ORAL
     Route: 048

REACTIONS (2)
  - HEPATIC NEOPLASM MALIGNANT [None]
  - HEPATITIS C [None]
